FAERS Safety Report 13093318 (Version 1)
Quarter: 2017Q1

REPORT INFORMATION
  Report Type: Spontaneous
  Country: US (occurrence: US)
  Receive Date: 20170106
  Receipt Date: 20170106
  Transmission Date: 20170428
  Serious: No
  Sender: FDA-Public Use
  Company Number: None

PATIENT
  Age: 77 Year
  Sex: Male
  Weight: 92.99 kg

DRUGS (11)
  1. BRILINTA [Suspect]
     Active Substance: TICAGRELOR
     Indication: MYOCARDIAL INFARCTION
     Dosage: QUANITY - 60 PILLS - ONE TABLET BID
     Route: 048
     Dates: start: 20161008
  2. DIOVAN [Concomitant]
     Active Substance: VALSARTAN
  3. CARDURA [Concomitant]
     Active Substance: DOXAZOSIN MESYLATE
  4. VITAMIN E [Concomitant]
     Active Substance: .ALPHA.-TOCOPHEROL
  5. BRILINTA [Suspect]
     Active Substance: TICAGRELOR
     Indication: CORONARY ARTERIAL STENT INSERTION
     Dosage: QUANITY - 60 PILLS - ONE TABLET BID
     Route: 048
     Dates: start: 20161008
  6. VITAMIN D3 [Concomitant]
     Active Substance: CHOLECALCIFEROL
  7. PLAVIX [Concomitant]
     Active Substance: CLOPIDOGREL BISULFATE
  8. FISH OIL [Concomitant]
     Active Substance: FISH OIL
  9. VITAMIN A [Concomitant]
     Active Substance: VITAMIN A
  10. BRILINTA [Suspect]
     Active Substance: TICAGRELOR
     Indication: THROMBOSIS PROPHYLAXIS
     Dosage: QUANITY - 60 PILLS - ONE TABLET BID
     Route: 048
     Dates: start: 20161008
  11. SAW PALMETTO [Concomitant]
     Active Substance: SAW PALMETTO

REACTIONS (1)
  - Skin exfoliation [None]

NARRATIVE: CASE EVENT DATE: 20161010
